FAERS Safety Report 10955097 (Version 1)
Quarter: 2015Q1

REPORT INFORMATION
  Report Type: Spontaneous
  Country: SG (occurrence: SG)
  Receive Date: 20150326
  Receipt Date: 20150326
  Transmission Date: 20150721
  Serious: Yes (Hospitalization)
  Sender: FDA-Public Use
  Company Number: PHHY2015SG031624

PATIENT
  Age: 54 Year
  Sex: Male

DRUGS (3)
  1. HYDROCORTISONE. [Suspect]
     Active Substance: HYDROCORTISONE
     Indication: PRODUCT USED FOR UNKNOWN INDICATION
     Dosage: 10 MG, TID
     Route: 065
  2. FLUDROCORTISONE [Suspect]
     Active Substance: FLUDROCORTISONE
     Indication: PRODUCT USED FOR UNKNOWN INDICATION
     Dosage: 0.15 MG, QD
     Route: 065
  3. ALLOPURINOL. [Concomitant]
     Active Substance: ALLOPURINOL
     Indication: HYPERURICAEMIA
     Dosage: 200 MG, QD
     Route: 065

REACTIONS (23)
  - Pyrexia [Unknown]
  - Chills [Unknown]
  - Asthenia [Unknown]
  - Vomiting [Unknown]
  - Confusional state [Unknown]
  - Rhabdomyolysis [Unknown]
  - Sensory loss [Recovered/Resolved]
  - Peripheral sensorimotor neuropathy [Recovered/Resolved]
  - Headache [Unknown]
  - Erythema [Unknown]
  - Lethargy [Unknown]
  - Mental status changes [Recovered/Resolved]
  - Gait disturbance [Unknown]
  - Chikungunya virus infection [Unknown]
  - Blood creatine phosphokinase increased [Unknown]
  - Autonomic nervous system imbalance [Recovered/Resolved]
  - Guillain-Barre syndrome [Recovered/Resolved]
  - Acute kidney injury [Recovering/Resolving]
  - Purpura [Unknown]
  - Rash maculo-papular [Unknown]
  - Dermatitis bullous [Unknown]
  - Orthostatic hypotension [Unknown]
  - Encephalopathy [Recovered/Resolved]
